FAERS Safety Report 7374322-9 (Version None)
Quarter: 2011Q1

REPORT INFORMATION
  Report Type: 
  Country: None (occurrence: None)
  Receive Date: 20110317
  Receipt Date: 20110303
  Transmission Date: 20110831
  Serious: Yes (Hospitalization)
  Sender: FDA-Public Use
  Company Number: 2009AC000139

PATIENT
  Age: 37 Year
  Sex: Male

DRUGS (68)
  1. DIGOXIN [Suspect]
     Dosage: PO
     Route: 048
     Dates: start: 20070701
  2. COREG [Concomitant]
  3. ATENOLOL [Concomitant]
  4. LOTENSIN [Concomitant]
  5. CACITONIN [Concomitant]
  6. ACETAMINOPHEN [Concomitant]
  7. FERROUS SULFATE TAB [Concomitant]
  8. KEFLEX [Concomitant]
  9. ALLOPURINOL [Concomitant]
  10. SPIRONOLACTONE [Concomitant]
  11. LEVAQUIN [Concomitant]
  12. ALDACTONE [Concomitant]
  13. SENOKOT [Concomitant]
  14. SOLU-MEDROL [Concomitant]
  15. IMURAN [Concomitant]
  16. COMBIVENT [Concomitant]
  17. PRINIVIL [Concomitant]
  18. VICODIN [Concomitant]
  19. PREVACID [Concomitant]
  20. AMBIEN [Concomitant]
  21. IV FLUIDS [Concomitant]
  22. DIGOXIN [Suspect]
     Indication: CARDIOMYOPATHY
     Dosage: 0.25 MG; QD; PO
     Route: 048
     Dates: start: 20000419, end: 20000101
  23. DIGOXIN [Suspect]
     Indication: CARDIAC FAILURE CONGESTIVE
     Dosage: 0.25 MG; QD; PO
     Route: 048
     Dates: start: 20000419, end: 20000101
  24. DIGOXIN [Suspect]
     Dosage: 0.25 MG; QD; PO
     Route: 048
     Dates: start: 20020101, end: 20080201
  25. OXYGEN [Concomitant]
  26. POTASSIUM CHLORIDE [Concomitant]
  27. ULTRAM [Concomitant]
  28. NYSTATIN [Concomitant]
  29. ZITHROMAX [Concomitant]
  30. AMIODARONE HCL [Concomitant]
  31. COUMADIN [Concomitant]
  32. ATENOLOL [Concomitant]
  33. PEPCID [Concomitant]
  34. ROBITUSSIN [Concomitant]
  35. TORADOL [Concomitant]
  36. OXYCODONE [Concomitant]
  37. VALCYTE [Concomitant]
  38. TUMS [Concomitant]
  39. MG OXIDE [Concomitant]
  40. AUGMENTIN [Concomitant]
  41. NORVASC [Concomitant]
  42. ATIVAN [Concomitant]
  43. LASIX [Concomitant]
  44. LISINOPRIL [Concomitant]
  45. TOPROL-XL [Concomitant]
  46. FOSAMAX [Concomitant]
  47. CALCIUM CARDONATE [Concomitant]
  48. LORTAB [Concomitant]
  49. NEURONTIN [Concomitant]
  50. HEPARIN [Concomitant]
  51. COZAAR [Concomitant]
  52. PREDNISONE [Concomitant]
  53. PRAVACHOL [Concomitant]
  54. COLACE [Concomitant]
  55. MYCELEX [Concomitant]
  56. PERSANTINE [Concomitant]
  57. VITAMIN K TAB [Concomitant]
  58. MIRALAX [Concomitant]
  59. CELLCEPT [Concomitant]
  60. SEPTRA DS [Concomitant]
  61. PROGRAF [Concomitant]
  62. INSULIN [Concomitant]
  63. VITMIN D [Concomitant]
  64. COLCHICINE [Concomitant]
  65. AMBIEN [Concomitant]
  66. PRILOSEC [Concomitant]
  67. MORPHINE [Concomitant]
  68. ASPIRIN [Concomitant]

REACTIONS (48)
  - GROIN PAIN [None]
  - PNEUMONIA [None]
  - ERYTHEMA [None]
  - ABDOMINAL PAIN UPPER [None]
  - WHEEZING [None]
  - PYREXIA [None]
  - JOINT SPRAIN [None]
  - TRANSPLANT REJECTION [None]
  - TREMOR [None]
  - PAIN IN EXTREMITY [None]
  - ALCOHOL USE [None]
  - FLANK PAIN [None]
  - GRAND MAL CONVULSION [None]
  - CONDITION AGGRAVATED [None]
  - HYPERGLYCAEMIA [None]
  - EYE SWELLING [None]
  - HYPERTENSION [None]
  - ECONOMIC PROBLEM [None]
  - PROTHROMBIN TIME PROLONGED [None]
  - JOINT INJURY [None]
  - MALAISE [None]
  - PULMONARY OEDEMA [None]
  - CARDIAC FAILURE CONGESTIVE [None]
  - EPSTEIN-BARR VIRUS TEST POSITIVE [None]
  - NEUROPATHY PERIPHERAL [None]
  - OSTEOARTHRITIS [None]
  - INTERNATIONAL NORMALISED RATIO INCREASED [None]
  - TREATMENT NONCOMPLIANCE [None]
  - RESPIRATORY FAILURE [None]
  - SYNCOPE [None]
  - BLOOD THYROID STIMULATING HORMONE INCREASED [None]
  - MULTIPLE DRUG OVERDOSE [None]
  - VENTRICULAR TACHYCARDIA [None]
  - HEART TRANSPLANT [None]
  - MULTIPLE INJURIES [None]
  - UNEVALUABLE EVENT [None]
  - HYPOTENSION [None]
  - LEFT VENTRICULAR HYPERTROPHY [None]
  - CARDIOMEGALY [None]
  - ARRHYTHMIA [None]
  - SLEEP APNOEA SYNDROME [None]
  - TACHYCARDIA [None]
  - HIP FRACTURE [None]
  - CONTUSION [None]
  - VOMITING [None]
  - CYTOMEGALOVIRUS TEST POSITIVE [None]
  - FATIGUE [None]
  - WEIGHT INCREASED [None]
